FAERS Safety Report 9551550 (Version 1)
Quarter: 2013Q3

REPORT INFORMATION
  Report Type: Spontaneous
  Country: US (occurrence: None)
  Receive Date: 20130724
  Receipt Date: 20130724
  Transmission Date: 20140515
  Serious: Yes (Other)
  Sender: FDA-Public Use
  Company Number: PHEH2013US005455

PATIENT
  Sex: Female

DRUGS (1)
  1. GLEEVEC (IMATINIB) [Suspect]

REACTIONS (1)
  - Oesophageal perforation [None]
